FAERS Safety Report 6843364-1 (Version None)
Quarter: 2010Q3

REPORT INFORMATION
  Report Type: 
  Country: None (occurrence: None)
  Receive Date: 20100715
  Receipt Date: 20100712
  Transmission Date: 20110219
  Serious: Yes (Hospitalization, Other)
  Sender: FDA-Public Use
  Company Number: US-RB-012686-10

PATIENT
  Sex: Female

DRUGS (2)
  1. MUCINEX [Suspect]
     Route: 048
  2. TOVIAZ [Suspect]
     Indication: HYPERTONIC BLADDER

REACTIONS (6)
  - BLOOD PRESSURE INCREASED [None]
  - DIZZINESS [None]
  - MALAISE [None]
  - NAUSEA [None]
  - PARAESTHESIA [None]
  - URTICARIA [None]
